FAERS Safety Report 8051567-6 (Version None)
Quarter: 2012Q1

REPORT INFORMATION
  Report Type: 
  Country: None (occurrence: None)
  Receive Date: 20120117
  Receipt Date: 20120104
  Transmission Date: 20120608
  Serious: Yes (Hospitalization)
  Sender: FDA-Public Use
  Company Number: US-MYLANLABS-2012S1000375

PATIENT
  Age: 60 Year
  Sex: Female

DRUGS (1)
  1. AMLODIPINE [Suspect]
     Route: 065

REACTIONS (2)
  - ANGIOEDEMA [None]
  - UNRESPONSIVE TO STIMULI [None]
